FAERS Safety Report 10092592 (Version 1)
Quarter: 2014Q2

REPORT INFORMATION
  Report Type: Spontaneous
  Country: US (occurrence: US)
  Receive Date: 20140421
  Receipt Date: 20140421
  Transmission Date: 20141212
  Serious: No
  Sender: FDA-Public Use
  Company Number: US-SANOFI-AVENTIS-2013SA057756

PATIENT
  Age: 88 Year
  Sex: Female
  Weight: 77.11 kg

DRUGS (4)
  1. ALLEGRA [Suspect]
     Indication: HYPERSENSITIVITY
     Route: 048
  2. HYDROCHLOROTHIAZIDE [Concomitant]
  3. LOSARTAN [Concomitant]
  4. VERAPAMIL [Concomitant]

REACTIONS (2)
  - Eye swelling [Unknown]
  - Drug ineffective [Unknown]
